FAERS Safety Report 7771103-9 (Version None)
Quarter: 2011Q3

REPORT INFORMATION
  Report Type: 
  Country: None (occurrence: None)
  Receive Date: 20110922
  Receipt Date: 20110920
  Transmission Date: 20111222
  Serious: Yes (Other)
  Sender: FDA-Public Use
  Company Number: FI-PFIZER INC-2011222401

PATIENT
  Age: 50 Year
  Sex: Male

DRUGS (1)
  1. ZITHROMAX [Suspect]
     Indication: COUGH
     Dosage: UNK
     Dates: start: 20110901, end: 20110901

REACTIONS (1)
  - PENILE ULCERATION [None]
